FAERS Safety Report 15715385 (Version 1)
Quarter: 2018Q4

REPORT INFORMATION
  Report Type: Spontaneous
  Country: US (occurrence: US)
  Receive Date: 20181212
  Receipt Date: 20181212
  Transmission Date: 20190205
  Serious: Yes (Other)
  Sender: FDA-Public Use
  Company Number: PHHY2018US179185

PATIENT
  Age: 7 Year
  Sex: Male

DRUGS (2)
  1. RISPERIDONE. [Suspect]
     Active Substance: RISPERIDONE
     Indication: ATTENTION DEFICIT/HYPERACTIVITY DISORDER
     Dosage: 0.25 MG, QD
     Route: 065
  2. RISPERIDONE. [Suspect]
     Active Substance: RISPERIDONE
     Dosage: 0.5 MG, QD
     Route: 065

REACTIONS (10)
  - Lymphadenopathy [Recovering/Resolving]
  - Urticarial vasculitis [Recovering/Resolving]
  - Purpura [Recovering/Resolving]
  - Arthralgia [Recovering/Resolving]
  - Peripheral swelling [Recovering/Resolving]
  - Angioedema [Recovering/Resolving]
  - Polyarthritis [Recovering/Resolving]
  - Serum sickness [Recovering/Resolving]
  - Rash maculo-papular [Recovering/Resolving]
  - Product use in unapproved indication [Unknown]
